FAERS Safety Report 5147187-3 (Version None)
Quarter: 2006Q4

REPORT INFORMATION
  Report Type: 
  Country: None (occurrence: None)
  Receive Date: 20061103
  Receipt Date: 20061025
  Transmission Date: 20070319
  Serious: Yes (Hospitalization)
  Sender: FDA-Public Use
  Company Number: HQWYE690327OCT06

PATIENT
  Age: 47 Year
  Sex: Female

DRUGS (1)
  1. OSTELUC (ETODOLAC, CAPSULE) [Suspect]
     Indication: ARTHRALGIA
     Dosage: ORAL
     Route: 048
     Dates: start: 20060805, end: 20060801

REACTIONS (5)
  - DECREASED APPETITE [None]
  - JAUNDICE [None]
  - LIVER DISORDER [None]
  - LYMPHOCYTE STIMULATION TEST POSITIVE [None]
  - PRURITUS [None]
